FAERS Safety Report 25277221 (Version 3)
Quarter: 2025Q3

REPORT INFORMATION
  Report Type: Spontaneous
  Country: CA (occurrence: CA)
  Receive Date: 20250507
  Receipt Date: 20250912
  Transmission Date: 20251021
  Serious: Yes (Death, Life-Threatening, Hospitalization, Disabling, Other)
  Sender: CELLTRION
  Company Number: CA-CELLTRION INC.-2025CA013136

PATIENT

DRUGS (156)
  1. RITUXIMAB [Suspect]
     Active Substance: RITUXIMAB
     Indication: Rheumatoid arthritis
     Route: 048
  2. RITUXIMAB [Suspect]
     Active Substance: RITUXIMAB
     Route: 065
  3. RITUXIMAB [Suspect]
     Active Substance: RITUXIMAB
     Route: 048
  4. ALENDRONIC ACID [Suspect]
     Active Substance: ALENDRONIC ACID
     Indication: Rheumatoid arthritis
     Route: 065
  5. ANAKINRA [Suspect]
     Active Substance: ANAKINRA
     Indication: Product used for unknown indication
     Route: 048
  6. ANAKINRA [Suspect]
     Active Substance: ANAKINRA
     Route: 065
  7. ANAKINRA [Suspect]
     Active Substance: ANAKINRA
     Route: 065
  8. ANAKINRA [Suspect]
     Active Substance: ANAKINRA
     Route: 065
  9. ANAKINRA [Suspect]
     Active Substance: ANAKINRA
     Route: 065
  10. ANAKINRA [Suspect]
     Active Substance: ANAKINRA
     Route: 048
  11. ANAKINRA [Suspect]
     Active Substance: ANAKINRA
     Route: 065
  12. ANAKINRA [Suspect]
     Active Substance: ANAKINRA
     Route: 065
  13. ANAKINRA [Suspect]
     Active Substance: ANAKINRA
     Route: 065
  14. ANAKINRA [Suspect]
     Active Substance: ANAKINRA
     Route: 065
  15. ANAKINRA [Suspect]
     Active Substance: ANAKINRA
     Route: 065
  16. LEFLUNOMIDE [Suspect]
     Active Substance: LEFLUNOMIDE
     Indication: Rheumatoid arthritis
     Route: 065
  17. LEFLUNOMIDE [Suspect]
     Active Substance: LEFLUNOMIDE
     Route: 065
  18. LEFLUNOMIDE [Suspect]
     Active Substance: LEFLUNOMIDE
     Route: 065
  19. LEFLUNOMIDE [Suspect]
     Active Substance: LEFLUNOMIDE
     Route: 065
  20. LEFLUNOMIDE [Suspect]
     Active Substance: LEFLUNOMIDE
     Route: 065
  21. LEFLUNOMIDE [Suspect]
     Active Substance: LEFLUNOMIDE
     Route: 065
  22. CETIRIZINE [Suspect]
     Active Substance: CETIRIZINE HYDROCHLORIDE
     Indication: Product used for unknown indication
     Route: 048
  23. CETIRIZINE [Suspect]
     Active Substance: CETIRIZINE HYDROCHLORIDE
     Indication: Product used for unknown indication
     Route: 065
  24. CETIRIZINE [Suspect]
     Active Substance: CETIRIZINE HYDROCHLORIDE
     Route: 048
  25. CETIRIZINE [Suspect]
     Active Substance: CETIRIZINE HYDROCHLORIDE
     Route: 065
  26. CETIRIZINE [Suspect]
     Active Substance: CETIRIZINE HYDROCHLORIDE
     Route: 065
  27. CETIRIZINE HYDROCHLORIDE [Suspect]
     Active Substance: CETIRIZINE HYDROCHLORIDE
     Indication: Rheumatoid arthritis
     Route: 058
  28. CORTISONE (HYDROCORTISONE) [Suspect]
     Active Substance: HYDROCORTISONE
     Indication: Rheumatoid arthritis
     Route: 016
  29. COSENTYX [Suspect]
     Active Substance: SECUKINUMAB
     Indication: Psoriatic arthropathy
     Route: 065
  30. DESOXIMETASONE [Suspect]
     Active Substance: DESOXIMETASONE
     Indication: Rheumatoid arthritis
     Route: 016
  31. DEXAMETHASONE [Suspect]
     Active Substance: DEXAMETHASONE
     Indication: Rheumatoid arthritis
     Route: 065
  32. DEXAMETHASONE [Suspect]
     Active Substance: DEXAMETHASONE
     Route: 016
  33. DEXAMETHASONE [Suspect]
     Active Substance: DEXAMETHASONE
     Route: 048
  34. DEXAMETHASONE [Suspect]
     Active Substance: DEXAMETHASONE
     Route: 048
  35. DEXAMETHASONE [Suspect]
     Active Substance: DEXAMETHASONE
     Route: 065
  36. DEXAMETHASONE [Suspect]
     Active Substance: DEXAMETHASONE
     Indication: Rheumatoid arthritis
     Route: 065
  37. DICLOFENAC [Suspect]
     Active Substance: DICLOFENAC
     Indication: Product used for unknown indication
     Route: 065
  38. DICLOFENAC [Suspect]
     Active Substance: DICLOFENAC
     Route: 065
  39. DICLOFENAC [Suspect]
     Active Substance: DICLOFENAC
     Route: 065
  40. DICLOFENAC [Suspect]
     Active Substance: DICLOFENAC
     Route: 065
  41. DICLOFENAC [Suspect]
     Active Substance: DICLOFENAC
     Indication: Product used for unknown indication
     Route: 065
  42. DICLOFENAC DIETHYLAMINE [Suspect]
     Active Substance: DICLOFENAC DIETHYLAMINE
     Indication: Product used for unknown indication
     Route: 003
  43. DICLOFENAC DIETHYLAMINE [Suspect]
     Active Substance: DICLOFENAC DIETHYLAMINE
     Indication: Product used for unknown indication
     Route: 048
  44. DICLOFENAC DIETHYLAMINE [Suspect]
     Active Substance: DICLOFENAC DIETHYLAMINE
     Route: 065
  45. DICLOFENAC DIETHYLAMINE [Suspect]
     Active Substance: DICLOFENAC DIETHYLAMINE
     Route: 065
  46. DICLOFENAC DIETHYLAMINE [Suspect]
     Active Substance: DICLOFENAC DIETHYLAMINE
     Route: 065
  47. DICLOFENAC DIETHYLAMINE [Suspect]
     Active Substance: DICLOFENAC DIETHYLAMINE
     Route: 048
  48. DICLOFENAC DIETHYLAMINE [Suspect]
     Active Substance: DICLOFENAC DIETHYLAMINE
     Route: 065
  49. DICLOFENAC DIETHYLAMINE [Suspect]
     Active Substance: DICLOFENAC DIETHYLAMINE
     Route: 065
  50. DICLOFENAC POTASSIUM [Suspect]
     Active Substance: DICLOFENAC POTASSIUM
     Indication: Product used for unknown indication
     Route: 047
  51. ERELZI [Suspect]
     Active Substance: ETANERCEPT-SZZS
     Indication: Rheumatoid arthritis
     Route: 058
  52. ERELZI [Suspect]
     Active Substance: ETANERCEPT-SZZS
     Route: 065
  53. ERELZI [Suspect]
     Active Substance: ETANERCEPT-SZZS
     Route: 065
  54. ERELZI [Suspect]
     Active Substance: ETANERCEPT-SZZS
     Route: 065
  55. ERELZI [Suspect]
     Active Substance: ETANERCEPT-SZZS
     Route: 058
  56. ERELZI [Suspect]
     Active Substance: ETANERCEPT-SZZS
     Route: 059
  57. FOLIC ACID [Suspect]
     Active Substance: FOLIC ACID
     Indication: Rheumatoid arthritis
     Route: 048
  58. FOLIC ACID [Suspect]
     Active Substance: FOLIC ACID
     Route: 065
  59. FOLIC ACID [Suspect]
     Active Substance: FOLIC ACID
     Route: 065
  60. FOLIC ACID [Suspect]
     Active Substance: FOLIC ACID
     Route: 065
  61. FOLIC ACID [Suspect]
     Active Substance: FOLIC ACID
     Indication: Rheumatoid arthritis
     Route: 048
  62. HYRIMOZ [Suspect]
     Active Substance: ADALIMUMAB-ADAZ
     Indication: Rheumatoid arthritis
     Route: 058
  63. HYRIMOZ [Suspect]
     Active Substance: ADALIMUMAB-ADAZ
     Route: 058
  64. HYRIMOZ [Suspect]
     Active Substance: ADALIMUMAB-ADAZ
     Route: 059
  65. HYRIMOZ [Suspect]
     Active Substance: ADALIMUMAB-ADAZ
     Indication: Rheumatoid arthritis
     Route: 059
  66. HUMAN IMMUNOGLOBULIN G [Suspect]
     Active Substance: HUMAN IMMUNOGLOBULIN G
     Indication: Product used for unknown indication
     Route: 058
  67. HUMAN IMMUNOGLOBULIN G [Suspect]
     Active Substance: HUMAN IMMUNOGLOBULIN G
     Route: 058
  68. HUMAN IMMUNOGLOBULIN G [Suspect]
     Active Substance: HUMAN IMMUNOGLOBULIN G
     Indication: Product used for unknown indication
     Dosage: 40.0 MILLIGRAM, 1 EVERY 1 WEEK
     Route: 058
  69. HUMAN IMMUNOGLOBULIN G [Suspect]
     Active Substance: HUMAN IMMUNOGLOBULIN G
     Dosage: 40.0 MILLIGRAM, 1 EVERY 2 WEEKS
     Route: 058
  70. HUMAN IMMUNOGLOBULIN G [Suspect]
     Active Substance: HUMAN IMMUNOGLOBULIN G
     Route: 058
  71. HUMAN IMMUNOGLOBULIN G [Suspect]
     Active Substance: HUMAN IMMUNOGLOBULIN G
     Route: 065
  72. HUMAN IMMUNOGLOBULIN G [Suspect]
     Active Substance: HUMAN IMMUNOGLOBULIN G
     Route: 065
  73. HUMAN IMMUNOGLOBULIN G [Suspect]
     Active Substance: HUMAN IMMUNOGLOBULIN G
     Route: 065
  74. HUMAN IMMUNOGLOBULIN G [Suspect]
     Active Substance: HUMAN IMMUNOGLOBULIN G
     Route: 065
  75. HUMAN IMMUNOGLOBULIN G [Suspect]
     Active Substance: HUMAN IMMUNOGLOBULIN G
     Route: 048
  76. HUMAN IMMUNOGLOBULIN G [Suspect]
     Active Substance: HUMAN IMMUNOGLOBULIN G
     Route: 048
  77. HUMAN IMMUNOGLOBULIN G [Suspect]
     Active Substance: HUMAN IMMUNOGLOBULIN G
     Route: 058
  78. HUMAN IMMUNOGLOBULIN G [Suspect]
     Active Substance: HUMAN IMMUNOGLOBULIN G
     Route: 058
  79. HUMAN IMMUNOGLOBULIN G [Suspect]
     Active Substance: HUMAN IMMUNOGLOBULIN G
     Dosage: 40.0 MILLIGRAM, 1 EVERY 1 WEEK
     Route: 058
  80. HUMAN IMMUNOGLOBULIN G [Suspect]
     Active Substance: HUMAN IMMUNOGLOBULIN G
     Route: 058
  81. HUMAN IMMUNOGLOBULIN G [Suspect]
     Active Substance: HUMAN IMMUNOGLOBULIN G
     Route: 058
  82. HUMAN IMMUNOGLOBULIN G [Suspect]
     Active Substance: HUMAN IMMUNOGLOBULIN G
     Route: 048
  83. HUMAN IMMUNOGLOBULIN G [Suspect]
     Active Substance: HUMAN IMMUNOGLOBULIN G
     Route: 058
  84. HUMAN IMMUNOGLOBULIN G [Suspect]
     Active Substance: HUMAN IMMUNOGLOBULIN G
     Route: 048
  85. LEVOCETIRIZINE HYDROCHLORIDE [Suspect]
     Active Substance: LEVOCETIRIZINE HYDROCHLORIDE
     Indication: Product used for unknown indication
     Route: 042
  86. LEVOCETIRIZINE HYDROCHLORIDE [Suspect]
     Active Substance: LEVOCETIRIZINE HYDROCHLORIDE
     Route: 058
  87. LEVOCETIRIZINE HYDROCHLORIDE [Suspect]
     Active Substance: LEVOCETIRIZINE HYDROCHLORIDE
     Route: 042
  88. LEVOCETIRIZINE HYDROCHLORIDE [Suspect]
     Active Substance: LEVOCETIRIZINE HYDROCHLORIDE
     Route: 041
  89. LEVOCETIRIZINE HYDROCHLORIDE [Suspect]
     Active Substance: LEVOCETIRIZINE HYDROCHLORIDE
     Route: 058
  90. LEVOCETIRIZINE HYDROCHLORIDE [Suspect]
     Active Substance: LEVOCETIRIZINE HYDROCHLORIDE
     Route: 042
  91. LYRICA [Suspect]
     Active Substance: PREGABALIN
     Indication: Product used for unknown indication
     Route: 065
  92. LYRICA [Suspect]
     Active Substance: PREGABALIN
     Route: 065
  93. METHOTREXATE [Suspect]
     Active Substance: METHOTREXATE
     Indication: Rheumatoid arthritis
     Route: 065
  94. METHOTREXATE [Suspect]
     Active Substance: METHOTREXATE
     Route: 005
  95. METHOTREXATE [Suspect]
     Active Substance: METHOTREXATE
     Route: 065
  96. METHOTREXATE [Suspect]
     Active Substance: METHOTREXATE
     Route: 065
  97. METHOTREXATE [Suspect]
     Active Substance: METHOTREXATE
     Route: 065
  98. METHOTREXATE [Suspect]
     Active Substance: METHOTREXATE
     Route: 065
  99. METHOTREXATE [Suspect]
     Active Substance: METHOTREXATE
     Route: 065
  100. METHOTREXATE [Suspect]
     Active Substance: METHOTREXATE
     Route: 058
  101. METHOTREXATE [Suspect]
     Active Substance: METHOTREXATE
     Route: 065
  102. METHOTREXATE [Suspect]
     Active Substance: METHOTREXATE
     Route: 065
  103. METHOTREXATE [Suspect]
     Active Substance: METHOTREXATE
     Route: 065
  104. METHOTREXATE [Suspect]
     Active Substance: METHOTREXATE
     Dosage: 50 MILLIGRAM, 1 EVERY 1 WEEK
     Route: 058
  105. METHOTREXATE [Suspect]
     Active Substance: METHOTREXATE
     Route: 058
  106. METHOTREXATE [Suspect]
     Active Substance: METHOTREXATE
     Dosage: 50 MILLIGRAM, 1 EVERY 1 WEEK
     Route: 058
  107. METHOTREXATE [Suspect]
     Active Substance: METHOTREXATE
     Route: 058
  108. METHOTREXATE [Suspect]
     Active Substance: METHOTREXATE
     Indication: Rheumatoid arthritis
     Route: 048
  109. OXYCODONE [Suspect]
     Active Substance: OXYCODONE
     Indication: Product used for unknown indication
     Route: 048
  110. OXYCODONE [Suspect]
     Active Substance: OXYCODONE
     Route: 048
  111. OXYCODONE [Suspect]
     Active Substance: OXYCODONE
     Route: 048
  112. OXYCODONE [Suspect]
     Active Substance: OXYCODONE
     Route: 048
  113. OXYCODONE [Suspect]
     Active Substance: OXYCODONE
     Dosage: 25.0 MILLIGRAM, 1 EVERY 1 WEEK
     Route: 013
  114. OXYCODONE [Suspect]
     Active Substance: OXYCODONE
     Dosage: 25.0 MILLIGRAM, 1 EVERY 1 WEEK
     Route: 058
  115. OXYCODONE [Suspect]
     Active Substance: OXYCODONE
     Route: 048
  116. OXYCODONE [Suspect]
     Active Substance: OXYCODONE
     Route: 048
  117. OXYCODONE [Suspect]
     Active Substance: OXYCODONE
     Route: 048
  118. OXYCODONE [Suspect]
     Active Substance: OXYCODONE
     Route: 065
  119. OXYCODONE [Suspect]
     Active Substance: OXYCODONE
     Route: 065
  120. OXYCODONE [Suspect]
     Active Substance: OXYCODONE
     Dosage: 25.0 MILLIGRAM, 1 EVERY 1 WEEK
     Route: 058
  121. OXYCODONE [Suspect]
     Active Substance: OXYCODONE
     Route: 003
  122. OXYCODONE [Suspect]
     Active Substance: OXYCODONE
     Route: 048
  123. OXYCODONE [Suspect]
     Active Substance: OXYCODONE
     Route: 065
  124. OXYCODONE [Suspect]
     Active Substance: OXYCODONE
     Route: 059
  125. OXYCODONE [Suspect]
     Active Substance: OXYCODONE
     Route: 059
  126. PREGABALIN [Suspect]
     Active Substance: PREGABALIN
     Indication: Product used for unknown indication
     Route: 065
  127. PREGABALIN [Suspect]
     Active Substance: PREGABALIN
     Route: 065
  128. LEFLUNOMIDE [Suspect]
     Active Substance: LEFLUNOMIDE
     Indication: Rheumatoid arthritis
     Route: 048
  129. LEFLUNOMIDE [Suspect]
     Active Substance: LEFLUNOMIDE
     Route: 065
  130. LEFLUNOMIDE [Suspect]
     Active Substance: LEFLUNOMIDE
     Route: 065
  131. LEFLUNOMIDE [Suspect]
     Active Substance: LEFLUNOMIDE
     Route: 048
  132. LEFLUNOMIDE [Suspect]
     Active Substance: LEFLUNOMIDE
     Route: 048
  133. LEFLUNOMIDE [Suspect]
     Active Substance: LEFLUNOMIDE
     Indication: Rheumatoid arthritis
     Route: 048
  134. MYCOPHENOLATE MOFETIL [Suspect]
     Active Substance: MYCOPHENOLATE MOFETIL
     Indication: Psoriatic arthropathy
     Route: 065
  135. MYCOPHENOLATE MOFETIL [Suspect]
     Active Substance: MYCOPHENOLATE MOFETIL
     Indication: Psoriatic arthropathy
     Route: 048
  136. TRIAMCINOLONE [Suspect]
     Active Substance: TRIAMCINOLONE
     Indication: Rheumatoid arthritis
     Route: 065
  137. TRIAMCINOLONE [Suspect]
     Active Substance: TRIAMCINOLONE
     Indication: Rheumatoid arthritis
     Route: 048
  138. DICLOFENAC DIETHYLAMINE [Suspect]
     Active Substance: DICLOFENAC DIETHYLAMINE
     Indication: Product used for unknown indication
     Route: 047
  139. DICLOFENAC DIETHYLAMINE [Suspect]
     Active Substance: DICLOFENAC DIETHYLAMINE
     Route: 065
  140. DICLOFENAC DIETHYLAMINE [Suspect]
     Active Substance: DICLOFENAC DIETHYLAMINE
     Route: 065
  141. DICLOFENAC DIETHYLAMINE [Suspect]
     Active Substance: DICLOFENAC DIETHYLAMINE
     Route: 065
  142. DICLOFENAC DIETHYLAMINE [Suspect]
     Active Substance: DICLOFENAC DIETHYLAMINE
     Indication: Product used for unknown indication
     Route: 048
  143. DICLOFENAC DIETHYLAMINE [Suspect]
     Active Substance: DICLOFENAC DIETHYLAMINE
     Route: 065
  144. DICLOFENAC DIETHYLAMINE [Suspect]
     Active Substance: DICLOFENAC DIETHYLAMINE
     Route: 065
  145. DICLOFENAC DIETHYLAMINE [Suspect]
     Active Substance: DICLOFENAC DIETHYLAMINE
     Route: 065
  146. DICLOFENAC DIETHYLAMINE [Suspect]
     Active Substance: DICLOFENAC DIETHYLAMINE
     Route: 048
  147. DICLOFENAC DIETHYLAMINE [Suspect]
     Active Substance: DICLOFENAC DIETHYLAMINE
     Route: 065
  148. DICLOFENAC DIETHYLAMINE [Suspect]
     Active Substance: DICLOFENAC DIETHYLAMINE
     Route: 047
  149. DICLOFENAC DIETHYLAMINE [Suspect]
     Active Substance: DICLOFENAC DIETHYLAMINE
     Route: 065
  150. DICLOFENAC DIETHYLAMINE [Suspect]
     Active Substance: DICLOFENAC DIETHYLAMINE
     Route: 065
  151. DICLOFENAC DIETHYLAMINE [Suspect]
     Active Substance: DICLOFENAC DIETHYLAMINE
     Route: 048
  152. DICLOFENAC DIETHYLAMINE [Suspect]
     Active Substance: DICLOFENAC DIETHYLAMINE
     Route: 065
  153. DICLOFENAC DIETHYLAMINE [Suspect]
     Active Substance: DICLOFENAC DIETHYLAMINE
     Route: 065
  154. DICLOFENAC DIETHYLAMINE [Suspect]
     Active Substance: DICLOFENAC DIETHYLAMINE
     Route: 003
  155. VITAMIN D3 [Concomitant]
     Active Substance: CHOLECALCIFEROL
     Indication: Product used for unknown indication
     Route: 065
  156. VITAMIN D3 [Concomitant]
     Active Substance: CHOLECALCIFEROL
     Indication: Product used for unknown indication
     Route: 065

REACTIONS (18)
  - Adrenal insufficiency [Fatal]
  - Hypokalaemia [Fatal]
  - Immunodeficiency [Fatal]
  - Loss of consciousness [Fatal]
  - Joint destruction [Fatal]
  - Polyarthritis [Fatal]
  - Pregnancy [Fatal]
  - Exposure during pregnancy [Fatal]
  - Maternal exposure during pregnancy [Fatal]
  - Drug tolerance [Fatal]
  - Therapeutic product effect decreased [Fatal]
  - Therapy non-responder [Fatal]
  - Contraindicated product administered [Fatal]
  - Intentional product use issue [Fatal]
  - Off label use [Fatal]
  - Product use in unapproved indication [Fatal]
  - Intentional product use issue [Unknown]
  - Overdose [Unknown]
